FAERS Safety Report 16647289 (Version 1)
Quarter: 2019Q3

REPORT INFORMATION
  Report Type: Spontaneous
  Country: US (occurrence: US)
  Receive Date: 20190729
  Receipt Date: 20190729
  Transmission Date: 20191004
  Serious: Yes (Other)
  Sender: FDA-Public Use
  Company Number: None

PATIENT
  Age: 49 Year
  Sex: Female
  Weight: 119.25 kg

DRUGS (3)
  1. SYNTHROID [Suspect]
     Active Substance: LEVOTHYROXINE SODIUM
     Indication: HYPOTHYROIDISM
     Dosage: ?          QUANTITY:1 TABLET(S);?
     Route: 048
     Dates: start: 20190710, end: 20190724
  2. OLLY MULTIVITAMIN FOR WOMEN [Concomitant]
  3. LISINOPRIL 10MG TABLETS [Concomitant]
     Active Substance: LISINOPRIL

REACTIONS (4)
  - Skin burning sensation [None]
  - Pruritus [None]
  - Rash papular [None]
  - Urticaria [None]

NARRATIVE: CASE EVENT DATE: 20190712
